FAERS Safety Report 16115297 (Version 6)
Quarter: 2020Q2

REPORT INFORMATION
  Report Type: Report from Study
  Country: BR (occurrence: BR)
  Receive Date: 20190325
  Receipt Date: 20200507
  Transmission Date: 20200713
  Serious: Yes (Hospitalization, Other)
  Sender: FDA-Public Use
  Company Number: BR-PFIZER INC-2019127719

PATIENT
  Age: 43 Year
  Sex: Female

DRUGS (11)
  1. ENTYVIO [Suspect]
     Active Substance: VEDOLIZUMAB
     Indication: CROHN^S DISEASE
     Dosage: UNK
     Route: 042
     Dates: start: 20180223
  2. TRAMAL [Concomitant]
     Active Substance: TRAMADOL
     Dosage: UNK
     Route: 065
  3. TRAMAL [Concomitant]
     Active Substance: TRAMADOL
     Dosage: UNK
     Route: 065
  4. PANTOZOL [Suspect]
     Active Substance: PANTOPRAZOLE SODIUM
     Indication: HIATUS HERNIA
     Dosage: 20 MG, 1X/DAY (QD)
     Route: 065
  5. PANTOZOL [Suspect]
     Active Substance: PANTOPRAZOLE SODIUM
     Indication: GASTROOESOPHAGEAL REFLUX DISEASE
  6. DULOXETINE. [Concomitant]
     Active Substance: DULOXETINE
     Indication: DEPRESSION
     Dosage: 60 MG, 1X/DAY (QD)
  7. AZATHIOPRINE. [Concomitant]
     Active Substance: AZATHIOPRINE
     Indication: CROHN^S DISEASE
     Dosage: 50 MG, 1X/DAY (QD)
  8. ALLURENE [Concomitant]
     Active Substance: DIENOGEST
     Dosage: 2 MG
  9. ENTYVIO [Suspect]
     Active Substance: VEDOLIZUMAB
     Dosage: 300 MG, MONTHLY (Q4WEEKS)
     Route: 042
     Dates: start: 20190118
  10. VENLAFAXIN [Concomitant]
     Active Substance: VENLAFAXINE HYDROCHLORIDE
     Indication: DEPRESSION
     Dosage: 75 MG, 1X/DAY (QD)
  11. VENLAFAXIN [Concomitant]
     Active Substance: VENLAFAXINE HYDROCHLORIDE
     Dosage: 75 MG, 1X/DAY

REACTIONS (31)
  - Tremor [Recovering/Resolving]
  - Rhinitis [Unknown]
  - Hypertension [Not Recovered/Not Resolved]
  - Vomiting [Unknown]
  - Oropharyngeal pain [Recovered/Resolved]
  - Gastrooesophageal reflux disease [Recovering/Resolving]
  - Bladder discomfort [Recovering/Resolving]
  - Flatulence [Recovering/Resolving]
  - Headache [Recovered/Resolved]
  - Nausea [Recovered/Resolved]
  - Crohn^s disease [Recovering/Resolving]
  - Sciatica [Recovering/Resolving]
  - Paraesthesia [Recovered/Resolved]
  - Decreased immune responsiveness [Recovering/Resolving]
  - Nausea [Recovered/Resolved]
  - Oral herpes [Unknown]
  - Intestinal perforation [Recovering/Resolving]
  - Dyspnoea [Unknown]
  - Constipation [Recovering/Resolving]
  - Rash erythematous [Recovering/Resolving]
  - Sinusitis [Recovered/Resolved]
  - Hormone level abnormal [Unknown]
  - Skin discolouration [Unknown]
  - Fistula [Recovered/Resolved]
  - Dermatitis allergic [Recovering/Resolving]
  - Off label use [Unknown]
  - Influenza [Recovered/Resolved]
  - Abdominal pain [Recovered/Resolved]
  - Aphthous ulcer [Unknown]
  - Emotional disorder [Unknown]
  - Fatigue [Recovering/Resolving]

NARRATIVE: CASE EVENT DATE: 20180226
